FAERS Safety Report 8044382-0 (Version None)
Quarter: 2012Q1

REPORT INFORMATION
  Report Type: 
  Country: None (occurrence: None)
  Receive Date: 20120113
  Receipt Date: 20120103
  Transmission Date: 20120608
  Serious: Yes (Death)
  Sender: FDA-Public Use
  Company Number: US-SHIONOGI, INC-2012000009

PATIENT
  Age: 28 Year
  Sex: Male

DRUGS (5)
  1. GABAPENTIN [Suspect]
     Dosage: UNK
  2. HYDROCODONE BITARTRATE AND ACETAMINOPHEN [Suspect]
     Dosage: UNK
  3. CLONIDINE [Suspect]
     Dosage: UNK
  4. OXYMORPHONE [Suspect]
     Dosage: UNK
  5. KETAMINE HCL [Suspect]
     Dosage: UNK

REACTIONS (1)
  - SUBSTANCE ABUSE [None]
